FAERS Safety Report 6068583-6 (Version None)
Quarter: 2009Q1

REPORT INFORMATION
  Report Type: 
  Country: None (occurrence: None)
  Receive Date: 20090206
  Receipt Date: 20081203
  Transmission Date: 20090719
  Serious: Yes (Hospitalization, Other)
  Sender: FDA-Public Use
  Company Number: US-PFIZER INC-2007093652

PATIENT
  Sex: Female
  Weight: 109 kg

DRUGS (18)
  1. CHANTIX [Suspect]
     Indication: EX-TOBACCO USER
     Dosage: EVERYDAY
     Dates: start: 20070801, end: 20081101
  2. CHANTIX [Suspect]
     Indication: TOBACCO ABUSE
  3. PERCOCET [Concomitant]
  4. ZANAFLEX [Concomitant]
     Indication: NEURALGIA
  5. AMBIEN [Concomitant]
  6. XANAX [Concomitant]
  7. VYTORIN [Concomitant]
  8. ALBUTEROL [Concomitant]
  9. ARTHRITIS PAIN FORMULA [Concomitant]
  10. FENTANYL [Concomitant]
  11. LIDOCAINE [Concomitant]
  12. ROBAXIN [Concomitant]
  13. SENOKOT [Concomitant]
  14. TRAZODONE HYDROCHLORIDE [Concomitant]
  15. TRICOR [Concomitant]
  16. ZOCOR [Concomitant]
  17. CYMBALTA [Concomitant]
  18. TRAMADOL HYDROCHLORIDE [Concomitant]

REACTIONS (6)
  - CARDIAC DISORDER [None]
  - CHEST PAIN [None]
  - DIABETES MELLITUS [None]
  - DIZZINESS [None]
  - MALAISE [None]
  - NAUSEA [None]
